FAERS Safety Report 4627357-0 (Version None)
Quarter: 2005Q1

REPORT INFORMATION
  Report Type: 
  Country: None (occurrence: None)
  Receive Date: 20050331
  Receipt Date: 20050322
  Transmission Date: 20050727
  Serious: Yes (Other)
  Sender: FDA-Public Use
  Company Number: 2005-03-1470

PATIENT
  Age: 34 Year
  Sex: Female

DRUGS (4)
  1. NASONEX [Suspect]
     Indication: SINUSITIS
     Dosage: SEE IMAGE
     Route: 045
     Dates: start: 20040801, end: 20050101
  2. NASONEX [Suspect]
     Indication: SINUSITIS
     Dosage: SEE IMAGE
     Route: 045
     Dates: start: 20050101
  3. SYMBICORT (BUDESONIDE/FORMOTEROL) [Concomitant]
  4. PREVACID [Concomitant]

REACTIONS (1)
  - ANOSMIA [None]
